FAERS Safety Report 9360425 (Version 1)
Quarter: 2013Q2

REPORT INFORMATION
  Report Type: Spontaneous
  Country: ES (occurrence: ES)
  Receive Date: 20130621
  Receipt Date: 20130621
  Transmission Date: 20140414
  Serious: Yes (Hospitalization)
  Sender: FDA-Public Use
  Company Number: ES-ROCHE-1239497

PATIENT
  Age: 57 Year
  Sex: Male

DRUGS (4)
  1. AVASTIN [Suspect]
     Indication: COLON CANCER METASTATIC
     Route: 042
     Dates: start: 20121203, end: 20130320
  2. IRINOTECAN [Concomitant]
     Route: 065
     Dates: start: 20121203
  3. FLUOROURACIL [Concomitant]
     Route: 065
     Dates: start: 20130429
  4. FOLINIC ACID [Concomitant]
     Route: 065
     Dates: end: 20121203

REACTIONS (2)
  - Urinary retention [Recovered/Resolved]
  - Haematuria [Recovered/Resolved]
